FAERS Safety Report 22616444 (Version 2)
Quarter: 2023Q2

REPORT INFORMATION
  Report Type: Spontaneous
  Country: FR (occurrence: US)
  Receive Date: 20230619
  Receipt Date: 20230628
  Transmission Date: 20230721
  Serious: Yes (Congenital Anomaly, Other)
  Sender: FDA-Public Use
  Company Number: FR-JNJFOC-20230613359

PATIENT

DRUGS (8)
  1. NORVIR [Suspect]
     Active Substance: RITONAVIR
     Indication: Maternal exposure timing unspecified
     Route: 064
  2. RILPIVIRINE [Suspect]
     Active Substance: RILPIVIRINE
     Indication: Maternal exposure timing unspecified
     Dosage: UNK
     Route: 065
     Dates: start: 20220429
  3. RILPIVIRINE [Suspect]
     Active Substance: RILPIVIRINE
     Indication: Maternal exposure timing unspecified
     Route: 065
     Dates: start: 20230429
  4. PREZISTA [Suspect]
     Active Substance: DARUNAVIR ETHANOLATE
     Indication: Maternal exposure timing unspecified
     Dosage: UNK
     Route: 064
  5. VOCABRIA [Suspect]
     Active Substance: CABOTEGRAVIR SODIUM
     Indication: Maternal exposure timing unspecified
     Route: 065
     Dates: start: 20230429
  6. VOCABRIA [Suspect]
     Active Substance: CABOTEGRAVIR SODIUM
     Indication: Maternal exposure timing unspecified
     Dosage: UNK
     Route: 064
     Dates: start: 20220429
  7. TRUVADA [Suspect]
     Active Substance: EMTRICITABINE\TENOFOVIR DISOPROXIL FUMARATE
     Indication: Maternal exposure timing unspecified
     Route: 064
  8. TRUVADA [Suspect]
     Active Substance: EMTRICITABINE\TENOFOVIR DISOPROXIL FUMARATE
     Indication: Maternal exposure timing unspecified
     Dosage: UNK
     Route: 064

REACTIONS (3)
  - Atrioventricular septal defect [Unknown]
  - Foetal exposure during pregnancy [Unknown]
  - Heart disease congenital [Unknown]
